FAERS Safety Report 11370463 (Version 1)
Quarter: 2015Q3

REPORT INFORMATION
  Report Type: Spontaneous
  Country: US (occurrence: US)
  Receive Date: 20150812
  Receipt Date: 20150812
  Transmission Date: 20151125
  Serious: No
  Sender: FDA-Public Use
  Company Number: US-ELI_LILLY_AND_COMPANY-US201507006783

PATIENT
  Sex: Male

DRUGS (3)
  1. NAPROSYN [Concomitant]
     Active Substance: NAPROXEN
  2. CIALIS [Suspect]
     Active Substance: TADALAFIL
     Indication: ERECTILE DYSFUNCTION
     Dosage: 20 MG, PRN
     Route: 048
  3. CIALIS [Suspect]
     Active Substance: TADALAFIL
     Indication: ERECTILE DYSFUNCTION
     Dosage: 5 MG, QD
     Route: 048
     Dates: start: 201502

REACTIONS (4)
  - Headache [Recovered/Resolved]
  - Drug ineffective [Recovered/Resolved]
  - Nasal congestion [Recovered/Resolved]
  - Gastric disorder [Recovered/Resolved]
